FAERS Safety Report 23999893 (Version 1)
Quarter: 2024Q2

REPORT INFORMATION
  Report Type: Spontaneous
  Country: HR (occurrence: HR)
  Receive Date: 20240621
  Receipt Date: 20240621
  Transmission Date: 20240716
  Serious: Yes (Other)
  Sender: FDA-Public Use
  Company Number: HR-PFIZER INC-PV202400080017

PATIENT
  Age: 76 Year
  Sex: Male

DRUGS (7)
  1. ELRANATAMAB [Suspect]
     Active Substance: ELRANATAMAB
     Indication: Anaemia
     Dosage: UNK
     Dates: start: 202304
  2. ELRANATAMAB [Suspect]
     Active Substance: ELRANATAMAB
     Indication: Bone disorder
  3. ELRANATAMAB [Suspect]
     Active Substance: ELRANATAMAB
     Indication: Plasma cells increased
  4. ACETAMINOPHEN [Concomitant]
     Active Substance: ACETAMINOPHEN
     Indication: Premedication
     Dosage: UNK
  5. SULFAMETHOXAZOLE [Concomitant]
     Active Substance: SULFAMETHOXAZOLE
     Indication: Prophylaxis
  6. LEVOFLOXACIN [Concomitant]
     Active Substance: LEVOFLOXACIN
     Indication: Prophylaxis
     Dosage: UNK
  7. FLUCONAZOLE [Concomitant]
     Active Substance: FLUCONAZOLE
     Indication: Prophylaxis
     Dosage: UNK

REACTIONS (2)
  - Neutropenic sepsis [Recovered/Resolved]
  - Neoplasm progression [Unknown]
